FAERS Safety Report 6908837-1 (Version None)
Quarter: 2010Q3

REPORT INFORMATION
  Report Type: 
  Country: None (occurrence: None)
  Receive Date: 20100805
  Receipt Date: 20100803
  Transmission Date: 20110219
  Serious: Yes (Life-Threatening, Hospitalization)
  Sender: FDA-Public Use
  Company Number: B0639736A

PATIENT
  Sex: Male
  Weight: 71 kg

DRUGS (11)
  1. ARIXTRA [Suspect]
     Dosage: 7.5MG PER DAY
     Route: 058
     Dates: start: 20100216, end: 20100306
  2. FRAXIPARINE [Suspect]
     Route: 065
     Dates: end: 20100216
  3. PERMIXON 160 [Concomitant]
     Route: 065
  4. ESCITALOPRAM OXALATE [Concomitant]
     Dosage: 10MG PER DAY
     Route: 065
     Dates: start: 20100106
  5. XANAX [Concomitant]
     Dosage: .125MG PER DAY
     Route: 065
     Dates: start: 20100106
  6. RABEPRAZOLE SODIUM [Concomitant]
     Dosage: 10MG PER DAY
     Route: 065
  7. TAMSULOSINE [Concomitant]
     Route: 065
  8. AMAREL [Concomitant]
     Dosage: 1UNIT PER DAY
     Route: 065
  9. EQUANIL [Concomitant]
     Dosage: 350MG PER DAY
     Route: 065
  10. THROMBOEMBOLIC DISEASE STOCKINGS [Concomitant]
  11. EYE MEDICATION [Concomitant]
     Route: 065

REACTIONS (6)
  - AGGRESSION [None]
  - CEREBRAL HAEMORRHAGE [None]
  - CONFUSIONAL STATE [None]
  - DISORIENTATION [None]
  - GAIT DISTURBANCE [None]
  - SPEECH DISORDER [None]
